FAERS Safety Report 8124455-4 (Version None)
Quarter: 2012Q1

REPORT INFORMATION
  Report Type: 
  Country: None (occurrence: None)
  Receive Date: 20120209
  Receipt Date: 20120203
  Transmission Date: 20120608
  Serious: No
  Sender: FDA-Public Use
  Company Number: US-BAYER-2012-011736

PATIENT
  Sex: Female

DRUGS (1)
  1. MIRENA [Suspect]
     Indication: MENORRHAGIA
     Dosage: 20 MCG/24HR, CONT
     Route: 015
     Dates: start: 20111219, end: 20120126

REACTIONS (6)
  - BREAST PAIN [None]
  - LIBIDO DECREASED [None]
  - TENDERNESS [None]
  - DEPRESSED MOOD [None]
  - ABDOMINAL DISTENSION [None]
  - WEIGHT INCREASED [None]
